FAERS Safety Report 14351305 (Version 1)
Quarter: 2018Q1

REPORT INFORMATION
  Report Type: Report from Study
  Country: CO (occurrence: CO)
  Receive Date: 20180104
  Receipt Date: 20180104
  Transmission Date: 20180509
  Serious: Yes (Life-Threatening, Hospitalization, Other)
  Sender: FDA-Public Use
  Company Number: CO-AMGEN-COLSL2017192682

PATIENT
  Age: 53 Year
  Sex: Male

DRUGS (1)
  1. MIMPARA [Suspect]
     Active Substance: CINACALCET HYDROCHLORIDE
     Indication: HYPERPARATHYROIDISM SECONDARY
     Dosage: 30 MG, QD
     Route: 048
     Dates: start: 20161219, end: 20170630

REACTIONS (4)
  - Seizure [Not Recovered/Not Resolved]
  - Mental disorder [Unknown]
  - Hypertension [Unknown]
  - Dialysis [Unknown]

NARRATIVE: CASE EVENT DATE: 201712
